FAERS Safety Report 11058540 (Version 1)
Quarter: 2015Q2

REPORT INFORMATION
  Report Type: Spontaneous
  Country: US (occurrence: None)
  Receive Date: 20150420
  Receipt Date: 20150420
  Transmission Date: 20150821
  Serious: No
  Sender: FDA-Public Use
  Company Number: AEGR001207

PATIENT
  Age: 64 Year
  Sex: Female
  Weight: 78 kg

DRUGS (1)
  1. JUXTAPID [Suspect]
     Active Substance: LOMITAPIDE MESYLATE
     Indication: TYPE IIA HYPERLIPIDAEMIA
     Route: 048
     Dates: start: 201405, end: 201406

REACTIONS (3)
  - Oral discomfort [None]
  - Lip swelling [None]
  - Dry mouth [None]

NARRATIVE: CASE EVENT DATE: 201409
